FAERS Safety Report 7399060-8 (Version None)
Quarter: 2011Q1

REPORT INFORMATION
  Report Type: 
  Country: None (occurrence: None)
  Receive Date: 20110328
  Receipt Date: 20110314
  Transmission Date: 20110831
  Serious: Yes (Hospitalization)
  Sender: FDA-Public Use
  Company Number: 2011MA002388

PATIENT
  Age: 55 Year
  Sex: Male

DRUGS (13)
  1. HEPARIN [Concomitant]
  2. PROPOFOL [Suspect]
     Dosage: 20 MG; QH;
  3. IPRATROPIUM BROMIDE [Concomitant]
  4. FENTANYL TRANSDERMAL SYSTE, 25 MCG/HOUR (ASALLC) [Suspect]
     Indication: ABDOMINAL PAIN
     Dosage: 350 MCG; QH; IV
     Route: 042
  5. CHLORPROMAZINE [Concomitant]
  6. TOBRAMYCIN [Concomitant]
  7. PIPERACILLIN AND TAZOBACTAM [Concomitant]
  8. METOPROLOL [Concomitant]
  9. DOCUSATE [Concomitant]
  10. FUROSEMIDE [Concomitant]
  11. LEVALBUTEROL HCL [Concomitant]
  12. DILTIAZEM HYDROCHLORIDE [Suspect]
     Dosage: 15 MG, QH;
  13. DIGOXIN [Concomitant]

REACTIONS (24)
  - MALAISE [None]
  - MEDIASTINITIS [None]
  - ACUTE RESPIRATORY DISTRESS SYNDROME [None]
  - BLOOD BICARBONATE INCREASED [None]
  - BLOOD ALBUMIN DECREASED [None]
  - DELIRIUM [None]
  - BLOOD PRESSURE SYSTOLIC INCREASED [None]
  - ASCITES [None]
  - RALES [None]
  - OBSTRUCTIVE UROPATHY [None]
  - MYOCLONUS [None]
  - STAPHYLOCOCCAL SEPSIS [None]
  - BLOOD GLUCOSE INCREASED [None]
  - BLOOD CALCIUM DECREASED [None]
  - HAEMOGLOBIN DECREASED [None]
  - NEUROTOXICITY [None]
  - SEPTIC SHOCK [None]
  - PROTEIN TOTAL DECREASED [None]
  - CONFUSIONAL STATE [None]
  - PSEUDOMONAL SEPSIS [None]
  - NEPHROLITHIASIS [None]
  - ANASTOMOTIC LEAK [None]
  - RENAL FAILURE ACUTE [None]
  - PLEURAL EFFUSION [None]
